FAERS Safety Report 7134877-6 (Version None)
Quarter: 2010Q4

REPORT INFORMATION
  Report Type: 
  Country: None (occurrence: None)
  Receive Date: 20101108
  Receipt Date: 20101004
  Transmission Date: 20110411
  Serious: Yes (Hospitalization, Other)
  Sender: FDA-Public Use
  Company Number: OMX-2010-00109

PATIENT
  Age: 67 Year
  Sex: Male
  Weight: 58.514 kg

DRUGS (4)
  1. EVICEL [Suspect]
     Indication: AORTIC BYPASS
     Dosage: EPILESIONAL
     Dates: start: 20100804, end: 20100804
  2. APPLICATOR [Concomitant]
  3. ASPIRIN [Concomitant]
  4. HEPARIN [Concomitant]

REACTIONS (5)
  - DEHYDRATION [None]
  - FLUID OVERLOAD [None]
  - HAEMATOCRIT DECREASED [None]
  - MONOCYTE PERCENTAGE INCREASED [None]
  - NODAL RHYTHM [None]
